FAERS Safety Report 25808444 (Version 7)
Quarter: 2025Q4

REPORT INFORMATION
  Report Type: Spontaneous
  Country: CA (occurrence: CA)
  Receive Date: 20250916
  Receipt Date: 20251211
  Transmission Date: 20260118
  Serious: Yes (Other)
  Sender: PFIZER
  Company Number: CA-PFIZER INC-202500179111

PATIENT
  Age: 68 Year
  Sex: Female

DRUGS (2)
  1. IXIFI [Suspect]
     Active Substance: INFLIXIMAB-QBTX
     Indication: Psoriatic arthropathy
     Dosage: 7.5 MG/KG, EVERY 6 WEEKS(1 DF)
     Route: 042
     Dates: start: 20250619
  2. IXIFI [Suspect]
     Active Substance: INFLIXIMAB-QBTX
     Dosage: 7.5 MG/KG, EVERY 6 WEEKS(1 DF)
     Route: 042
     Dates: start: 20250729, end: 2025

REACTIONS (4)
  - Arthritis bacterial [Not Recovered/Not Resolved]
  - Postoperative wound infection [Unknown]
  - Device dislocation [Unknown]
  - Device related infection [Unknown]

NARRATIVE: CASE EVENT DATE: 20250101
